FAERS Safety Report 5504222-8 (Version None)
Quarter: 2007Q4

REPORT INFORMATION
  Report Type: 
  Country: None (occurrence: None)
  Receive Date: 20071101
  Receipt Date: 20071024
  Transmission Date: 20080405
  Serious: Yes (Other)
  Sender: FDA-Public Use
  Company Number: US-ELI_LILLY_AND_COMPANY-US200710005894

PATIENT
  Sex: Female

DRUGS (6)
  1. FORTEO [Suspect]
     Indication: OSTEOPOROSIS
  2. DILTIAZEM [Concomitant]
     Indication: BLOOD PRESSURE
  3. CALCIUM [Concomitant]
     Indication: OSTEOPOROSIS
  4. VITAMINS [Concomitant]
  5. VITAMIN B-12 [Concomitant]
     Dosage: UNK, 2/D
  6. VITAMIN B-12 [Concomitant]
     Dosage: UNK, OTHER

REACTIONS (8)
  - ARRHYTHMIA [None]
  - BLISTER [None]
  - CONSTIPATION [None]
  - ERYTHEMA [None]
  - FEELING ABNORMAL [None]
  - MOBILITY DECREASED [None]
  - PRURITUS [None]
  - RASH [None]
